FAERS Safety Report 19219956 (Version 3)
Quarter: 2021Q2

REPORT INFORMATION
  Report Type: Spontaneous
  Country: BR (occurrence: BR)
  Receive Date: 20210506
  Receipt Date: 20210625
  Transmission Date: 20210717
  Serious: Yes (Other)
  Sender: FDA-Public Use
  Company Number: BR-CELLTRION INC.-2021BR006066

PATIENT

DRUGS (10)
  1. RIVOTRIL [Concomitant]
     Active Substance: CLONAZEPAM
     Indication: INSOMNIA
     Dosage: 2.5 MG, (1 TABLET/NIGHT, START DATE: MORE THAN 10 YEARS)
     Route: 048
  2. REMSIMA [Suspect]
     Active Substance: INFLIXIMAB
     Indication: COLITIS ULCERATIVE
     Dosage: 2.5 AMPOULES/INFUSION (START DATE: MORE THAN 10 YEARS)
     Route: 042
     Dates: start: 20210308
  3. INDAPAMIDE. [Concomitant]
     Active Substance: INDAPAMIDE
     Indication: HYPERTENSION
     Dosage: 25 MG, (1 TABLET/MORNING, START DATE: MORE THAN 30 YEARS)
     Route: 048
  4. CALCITRIOL. [Concomitant]
     Active Substance: CALCITRIOL
     Indication: OSTEOPOROSIS
     Dosage: 5 MG, (1 TABLET/MORNING, START DATE: MORE THAN 10 YEARS)
     Route: 048
  5. ESCITALOPRAM [Concomitant]
     Active Substance: ESCITALOPRAM OXALATE
     Indication: ANXIETY
     Dosage: 10 MG, (1 TABLET/NIGHT, START DATE: MORE THAN 10 YEARS)
     Route: 048
  6. D VITAMIN [Concomitant]
     Active Substance: VITAMIN D NOS
     Indication: VITAMIN SUPPLEMENTATION
     Dosage: 50000 IU, (1 TABLET/WEEK, START DATE: 2 WEEKS AGO)
     Route: 048
  7. TRAVOPROST. [Concomitant]
     Active Substance: TRAVOPROST
     Indication: GLAUCOMA
     Dosage: 5 ML, (ONCE/NIGHT, START DATE: MORE THAN 40 YEARS)
  8. IDAPEN (INDAPAMIDE) [Concomitant]
     Indication: HYPERTENSION
     Dosage: 1.5 MG, (1 TABLET/MORNING, START DATE: MORE THAN 30 YEARS)
     Route: 048
  9. DORZOLAMIDE [Concomitant]
     Active Substance: DORZOLAMIDE
     Indication: GLAUCOMA
     Dosage: 5M EACH 12 HOURS (MORE THAN 40 YEARS)
  10. REMSIMA [Suspect]
     Active Substance: INFLIXIMAB
     Dosage: 2.5 AMPOULES PER INFUSION
     Route: 042
     Dates: start: 20210503

REACTIONS (3)
  - COVID-19 [Unknown]
  - Intentional dose omission [Unknown]
  - Product substitution [Unknown]

NARRATIVE: CASE EVENT DATE: 202009
